FAERS Safety Report 10046946 (Version 1)
Quarter: 2014Q1

REPORT INFORMATION
  Report Type: Spontaneous
  Country: US (occurrence: None)
  Receive Date: 20140328
  Receipt Date: 20140328
  Transmission Date: 20141002
  Serious: Yes (Death)
  Sender: FDA-Public Use
  Company Number: None

PATIENT
  Age: 28 Year
  Sex: Male
  Weight: 130.9 kg

DRUGS (2)
  1. CORICIDIN [Suspect]
     Indication: DRUG ABUSE
     Route: 048
     Dates: start: 20140321
  2. DELSYM [Suspect]
     Indication: DRUG ABUSE
     Dates: start: 20140321

REACTIONS (4)
  - Personality change [None]
  - Agitation [None]
  - Seizure like phenomena [None]
  - Pulmonary embolism [None]
